FAERS Safety Report 4647645-1 (Version None)
Quarter: 2005Q2

REPORT INFORMATION
  Report Type: 
  Country: None (occurrence: None)
  Receive Date: 20050427
  Receipt Date: 20050427
  Transmission Date: 20051028
  Serious: Yes (Hospitalization)
  Sender: FDA-Public Use
  Company Number: None

PATIENT
  Age: 89 Year
  Sex: Male

DRUGS (6)
  1. WARFARIN [Suspect]
     Indication: THROMBOSIS PROPHYLAXIS
     Dates: start: 20050320, end: 20050323
  2. HEPARIN [Suspect]
     Indication: THROMBOSIS PROPHYLAXIS
  3. THEO-DUR [Concomitant]
  4. MAXZIDE [Concomitant]
  5. POTASSIUM CHLORIDE [Concomitant]
  6. ALBUTEROL [Concomitant]

REACTIONS (3)
  - ANAEMIA [None]
  - EROSIVE OESOPHAGITIS [None]
  - OESOPHAGEAL HAEMORRHAGE [None]
